FAERS Safety Report 7133901-4 (Version None)
Quarter: 2010Q4

REPORT INFORMATION
  Report Type: 
  Country: None (occurrence: None)
  Receive Date: 20101203
  Receipt Date: 20101026
  Transmission Date: 20110411
  Serious: Yes (Hospitalization)
  Sender: FDA-Public Use
  Company Number: US-BAYER-201022353NA

PATIENT

DRUGS (4)
  1. YASMIN [Suspect]
     Indication: CONTRACEPTION
     Route: 048
     Dates: start: 20040401, end: 20090401
  2. CYCLOBENZAPRINE [Concomitant]
     Route: 048
     Dates: start: 20060331
  3. IBUPROFEN [Concomitant]
     Dates: start: 20040101
  4. NEXIUM [Concomitant]

REACTIONS (3)
  - CHOLECYSTECTOMY [None]
  - CHOLELITHIASIS [None]
  - GALLBLADDER DISORDER [None]
